FAERS Safety Report 6493065-7 (Version None)
Quarter: 2009Q4

REPORT INFORMATION
  Report Type: 
  Country: None (occurrence: None)
  Receive Date: 20091214
  Receipt Date: 20091202
  Transmission Date: 20100525
  Serious: Yes (Other)
  Sender: FDA-Public Use
  Company Number: NZ-BAYER-200941918GPV

PATIENT
  Sex: Female

DRUGS (3)
  1. ASPIRIN [Suspect]
     Indication: CARDIAC VALVE DISEASE
  2. WARFARIN SODIUM [Suspect]
     Indication: CARDIAC VALVE DISEASE
  3. ENOXAPARIN SODIUM [Suspect]
     Indication: CARDIAC VALVE DISEASE

REACTIONS (1)
  - STILLBIRTH [None]
